FAERS Safety Report 8176880-3 (Version None)
Quarter: 2012Q1

REPORT INFORMATION
  Report Type: 
  Country: None (occurrence: None)
  Receive Date: 20120301
  Receipt Date: 20120227
  Transmission Date: 20120608
  Serious: No
  Sender: FDA-Public Use
  Company Number: US-BAYER-2012-020058

PATIENT

DRUGS (2)
  1. ALEVE (CAPLET) [Suspect]
     Indication: BACK PAIN
  2. ALEVE (CAPLET) [Suspect]
     Indication: ARTHRALGIA
     Route: 048

REACTIONS (3)
  - PRURITUS [None]
  - URTICARIA [None]
  - RASH [None]
